FAERS Safety Report 17431407 (Version 1)
Quarter: 2020Q1

REPORT INFORMATION
  Report Type: Spontaneous
  Country: US (occurrence: US)
  Receive Date: 20200218
  Receipt Date: 20200218
  Transmission Date: 20200409
  Serious: No
  Sender: FDA-Public Use
  Company Number: US-TEVA-2020-US-1187105

PATIENT
  Age: 57 Year
  Sex: Female

DRUGS (1)
  1. FEXOFENADINE [Suspect]
     Active Substance: FEXOFENADINE HYDROCHLORIDE
     Indication: PRODUCT USED FOR UNKNOWN INDICATION
     Dosage: FEXOFENADINE 180 MG 571
     Route: 048
     Dates: start: 202002

REACTIONS (3)
  - Dry mouth [Not Recovered/Not Resolved]
  - Tongue dry [Not Recovered/Not Resolved]
  - Tongue disorder [Not Recovered/Not Resolved]
